FAERS Safety Report 9070972 (Version 1)
Quarter: 2013Q1

REPORT INFORMATION
  Report Type: Report from Study
  Country: JP (occurrence: JP)
  Receive Date: 20130129
  Receipt Date: 20130129
  Transmission Date: 20140127
  Serious: Yes (Other)
  Sender: FDA-Public Use
  Company Number: JP-GLAXOSMITHKLINE-B0860477A

PATIENT
  Age: 54 None
  Sex: Male
  Weight: 95 kg

DRUGS (8)
  1. ARIXTRA [Suspect]
     Indication: THROMBOSIS PROPHYLAXIS
     Dosage: 2.5MG PER DAY
     Route: 058
     Dates: start: 20100226, end: 20100303
  2. ROPION [Concomitant]
     Route: 042
  3. SULBACILLIN [Concomitant]
  4. FENTANYL [Concomitant]
     Route: 008
  5. ANAPEINE [Concomitant]
     Route: 008
  6. KENTAN [Concomitant]
     Route: 048
  7. RILMAZAFONE HYDROCHLORIDE [Concomitant]
     Route: 048
  8. GENTACIN [Concomitant]
     Indication: PARONYCHIA
     Route: 061

REACTIONS (11)
  - Post procedural pneumonia [Recovered/Resolved]
  - Hepatic function abnormal [Not Recovered/Not Resolved]
  - Aspartate aminotransferase increased [Recovered/Resolved]
  - Protein total decreased [Recovered/Resolved]
  - C-reactive protein increased [Recovered/Resolved]
  - Anaemia [Recovered/Resolved]
  - Haemoglobin [Recovered/Resolved]
  - Haematocrit [Recovered/Resolved]
  - Pyrexia [Recovered/Resolved]
  - Productive cough [Recovered/Resolved]
  - Dyspnoea [Recovered/Resolved]
